FAERS Safety Report 20037073 (Version 22)
Quarter: 2023Q1

REPORT INFORMATION
  Report Type: Report from Study
  Country: GB (occurrence: GB)
  Receive Date: 20211105
  Receipt Date: 20230125
  Transmission Date: 20230418
  Serious: Yes (Hospitalization, Other)
  Sender: FDA-Public Use
  Company Number: GB-CELLTRION INC.-2021GB014828

PATIENT

DRUGS (69)
  1. TRASTUZUMAB [Suspect]
     Active Substance: TRASTUZUMAB
     Indication: Breast cancer metastatic
     Dosage: 651 MG, EVERY 3 WEEKS, LOADING DOSEPLANNED NUMBER OF CYCLES COMPLETED; CUMULATIVE DOSE: 459.04
     Route: 042
     Dates: start: 20160323, end: 20160323
  2. TRASTUZUMAB [Suspect]
     Active Substance: TRASTUZUMAB
     Dosage: 651 MG, EVERY 3 WEEKS, LOADING DOSEPLANNED NUMBER OF CYCLES COMPLETED, DOSE FORM: 230
     Route: 041
     Dates: start: 20160323, end: 20160323
  3. TRASTUZUMAB [Suspect]
     Active Substance: TRASTUZUMAB
     Dosage: 483 MG, CYCLIC (483 MG, EVERY 3 WEEKS), DOSE FORM: 230 (CUMULATIVE DOSE TO FIRST REACTION: 459.042MG
     Route: 042
     Dates: start: 20160413
  4. TRASTUZUMAB [Suspect]
     Active Substance: TRASTUZUMAB
     Dosage: 483 MG, CYCLIC (483 MG, EVERY 3 WEEKS), DOSE FORM: 230
     Route: 042
     Dates: start: 20160413
  5. DOCETAXEL [Suspect]
     Active Substance: DOCETAXEL
     Indication: Breast cancer metastatic
     Dosage: 140 MG, ONCE IN 2 WEEKS, DOSE FORM: 230
     Route: 042
     Dates: start: 20160324, end: 20160526
  6. DOCETAXEL [Suspect]
     Active Substance: DOCETAXEL
     Indication: Product used for unknown indication
     Dosage: 140 MG, ONCE IN 2 WEEKS, DOSE FORM: 230
     Route: 042
     Dates: start: 20160324, end: 20160526
  7. DOCETAXEL [Suspect]
     Active Substance: DOCETAXEL
     Dosage: 110 MG, CYCLIC EVERY 2 WEEKS (THERAPY DISCONTINUED: PLANNED NUMBER OF CYCLES COMPLETED)
     Route: 042
     Dates: start: 20160526, end: 20160707
  8. DOCETAXEL [Suspect]
     Active Substance: DOCETAXEL
     Dosage: 110 MG, CYCLIC EVERY 2 WEEKS (THERAPY DISCONTINUED: PLANNED NUMBER OF CYCLES COMPLETED)
     Route: 042
     Dates: start: 20160526, end: 20160707
  9. DOCETAXEL [Suspect]
     Active Substance: DOCETAXEL
     Dosage: 140 MG, ONCE IN 2 WEEKS
     Route: 042
     Dates: start: 20160324, end: 20160526
  10. DOCETAXEL [Suspect]
     Active Substance: DOCETAXEL
     Dosage: 110 MG, CYCLIC EVERY 2 WEEKS (THERAPY DISCONTINUED: PLANNED NUMBER OF CYCLES  COMPLETED)
     Route: 042
     Dates: start: 20160526, end: 20160707
  11. PERTUZUMAB [Suspect]
     Active Substance: PERTUZUMAB
     Indication: Breast cancer metastatic
     Dosage: 1260 MILLIGRAM, 1 WEEK (420 MILLIGRAM, 3XW ) DOSE FORM: 230
     Route: 042
  12. PERTUZUMAB [Suspect]
     Active Substance: PERTUZUMAB
     Dosage: 1260 MILLIGRAM, 1 WEEK (420 MILLIGRAM, 3XW ) DOSE FORM: 230, CYCLICAL (1 WEEK (420 MILLIGRAM, 3XW)
     Route: 042
  13. PERTUZUMAB [Suspect]
     Active Substance: PERTUZUMAB
     Dosage: 420 MG, TIW (EVERY 3 WEEKS ), DOSE FORM: 230 (CUMULATIVE DOSE: 399.16666 MG)
     Route: 042
     Dates: start: 20160413
  14. PERTUZUMAB [Suspect]
     Active Substance: PERTUZUMAB
     Dosage: 420 MG, TIW (EVERY 3 WEEKS ), DOSE FORM: 230
     Route: 042
     Dates: start: 20160413
  15. PERTUZUMAB [Suspect]
     Active Substance: PERTUZUMAB
     Dosage: 840 MILLIGRAM, ONCE A DAY(LOADING DOSE:PLANNED NUMBER OF CYCLES COMPLETED), DOSE FORM: 230 (CUMULATI
     Route: 042
     Dates: start: 20160324, end: 20160324
  16. PERTUZUMAB [Suspect]
     Active Substance: PERTUZUMAB
     Dosage: 840 MILLIGRAM, ONCE A DAY(LOADING DOSE:PLANNED NUMBER OF CYCLES COMPLETED), DOSE FORM: 230
     Route: 042
     Dates: start: 20160324, end: 20160324
  17. PERTUZUMAB [Suspect]
     Active Substance: PERTUZUMAB
     Dosage: 1260 MILLIGRAM, 1/WEEK, 420 MILLIGRAM(420 MG, Q3W)UNK, DOSE FORM: 230
     Route: 042
  18. PERTUZUMAB [Suspect]
     Active Substance: PERTUZUMAB
     Dosage: 1260 MILLIGRAM, 1/WEEK, 420 MILLIGRAM(420 MG, Q3W)UNK, DOSE FORM: 230
     Route: 042
  19. PERTUZUMAB [Suspect]
     Active Substance: PERTUZUMAB
     Dosage: 420 MG
     Route: 042
  20. PERTUZUMAB [Suspect]
     Active Substance: PERTUZUMAB
     Dosage: 420 MG 0.33 WEEK, 420 MILLIGRAM(420 MG, Q3W)UNK
     Route: 042
  21. PERTUZUMAB [Suspect]
     Active Substance: PERTUZUMAB
     Dosage: 420 MILLIGRAM(420 MG, Q3W)UNK
     Route: 042
  22. PERTUZUMAB [Suspect]
     Active Substance: PERTUZUMAB
     Dosage: 1260 MILLIGRAM, 1 WEEK (420 MILLIGRAM, 3XW ) (PAHARMACEUTICAL DOSE FORM: 230)
     Route: 042
  23. PERTUZUMAB [Suspect]
     Active Substance: PERTUZUMAB
     Dosage: UNK
     Route: 042
  24. PERTUZUMAB [Suspect]
     Active Substance: PERTUZUMAB
     Dosage: 420 MG, EVERY 3 WEEKS
     Route: 042
     Dates: start: 20160413
  25. PERTUZUMAB [Suspect]
     Active Substance: PERTUZUMAB
     Dosage: 840 MG, 1X/DAY, LOADING DOSE:PLANNED NUMBER OF CYCLES COMPLETED
     Route: 042
     Dates: start: 20160324, end: 20160324
  26. PERTUZUMAB [Suspect]
     Active Substance: PERTUZUMAB
     Dosage: 1260 MILLIGRAM, 1 WEEK (420 MILLIGRAM, 3XW )
     Route: 042
  27. PERTUZUMAB [Suspect]
     Active Substance: PERTUZUMAB
     Dosage: UNK
     Route: 042
  28. TAMOXIFEN [Suspect]
     Active Substance: TAMOXIFEN
     Indication: Breast cancer metastatic
     Dosage: UNK, QD (1X/DAY)
     Route: 048
     Dates: start: 201603
  29. TAMOXIFEN [Suspect]
     Active Substance: TAMOXIFEN
     Dosage: UNK
     Route: 048
     Dates: start: 201603
  30. ACETAMINOPHEN [Concomitant]
     Active Substance: ACETAMINOPHEN
     Indication: Product used for unknown indication
     Dosage: UNK
     Route: 065
  31. ACETAMINOPHEN [Concomitant]
     Active Substance: ACETAMINOPHEN
     Dosage: UNK
     Route: 065
  32. ACETAMINOPHEN [Concomitant]
     Active Substance: ACETAMINOPHEN
     Dosage: UNK
  33. DALTEPARIN [Concomitant]
     Active Substance: DALTEPARIN
     Indication: Thrombosis prophylaxis
     Dosage: 5000 INTERNATIONAL UNIT, ONCE A DAY5000 IU, QD (5000 IU, 1X/DAY), DOSE FORM: 120
     Route: 058
     Dates: start: 20160802, end: 20160809
  34. DALTEPARIN [Concomitant]
     Active Substance: DALTEPARIN
     Indication: Thrombosis prophylaxis
     Dosage: 5000 INTERNATIONAL UNIT, ONCE A DAY5000 IU, QD (5000 IU, 1X/DAY), DOSE FORM: 120
     Route: 058
     Dates: start: 20160802, end: 20160809
  35. DALTEPARIN [Concomitant]
     Active Substance: DALTEPARIN
     Dosage: 120
     Route: 065
  36. DALTEPARIN [Concomitant]
     Active Substance: DALTEPARIN
     Dosage: 120
     Route: 065
  37. DALTEPARIN [Concomitant]
     Active Substance: DALTEPARIN
     Dosage: UNK, CUMULATIVE DOSE TO FIRST REACTION: 40000 [IU]
  38. DALTEPARIN [Concomitant]
     Active Substance: DALTEPARIN
     Dosage: 5000 INTERNATIONAL UNIT, ONCE A DAY5000 IU, QD (5000 IU, 1X/DAY), DOSE FORM: 120, CUMULATIVE DOSE TO
     Route: 058
     Dates: start: 20160802, end: 20160809
  39. DALTEPARIN [Concomitant]
     Active Substance: DALTEPARIN
     Dosage: 120000 IU (120), CUMULATIVE DOSE TO FIRST REACTION: 40000 [IU]
  40. DALTEPARIN [Concomitant]
     Active Substance: DALTEPARIN
     Dosage: 120
  41. DALTEPARIN [Concomitant]
     Active Substance: DALTEPARIN
     Dosage: 5000 INTERNATIONAL UNIT, ONCE A DAY5000 IU, QD (5000 IU, 1X/DAY), DOSE FORM: 120
     Dates: start: 20160802, end: 20160809
  42. DALTEPARIN [Concomitant]
     Active Substance: DALTEPARIN
     Dosage: 120
  43. DALTEPARIN [Concomitant]
     Active Substance: DALTEPARIN
     Dosage: 5000 INTERNATIONAL UNIT, ONCE A DAY5000 IU, QD (5000 IU, 1X/DAY), DOSE FORM: 120
     Dates: start: 20160802, end: 20160809
  44. DALTEPARIN [Concomitant]
     Active Substance: DALTEPARIN
     Dosage: 5000 INTERNATIONAL UNIT, ONCE A DAY5000 IU, QD (5000 IU, 1X/DAY), DOSE FORM: 120
     Dates: start: 20160802, end: 20160809
  45. DENOSUMAB [Concomitant]
     Active Substance: DENOSUMAB
     Indication: Breast cancer metastatic
     Dosage: 120 MG (PHARMACEUTICAL DOSE FORM: 120)
     Route: 065
  46. DENOSUMAB [Concomitant]
     Active Substance: DENOSUMAB
     Indication: Metastases to bone
     Dosage: 120 MILLIGRAM, 28 DAY Q28D, DOSE FORM: 120, QD (28 DAY Q28D)
     Route: 058
     Dates: start: 20160323
  47. DENOSUMAB [Concomitant]
     Active Substance: DENOSUMAB
     Dosage: 120 MG
     Route: 065
  48. DENOSUMAB [Concomitant]
     Active Substance: DENOSUMAB
     Dosage: 120
     Route: 065
  49. DENOSUMAB [Concomitant]
     Active Substance: DENOSUMAB
     Dosage: 120 MG
     Route: 065
  50. DENOSUMAB [Concomitant]
     Active Substance: DENOSUMAB
     Dosage: 120 MILLIGRAM, 28 DAY Q28D
     Route: 058
  51. DENOSUMAB [Concomitant]
     Active Substance: DENOSUMAB
     Dosage: 120 MG
  52. DENOSUMAB [Concomitant]
     Active Substance: DENOSUMAB
     Dosage: 128 MG
  53. DEXAMETHASONE [Concomitant]
     Active Substance: DEXAMETHASONE
     Indication: Metastases to bone
     Dosage: (CUMULATIVE DOSE TO FIRST REACTION: 0.95238096 MG), 20 MG, TIW
     Route: 042
     Dates: start: 20160324
  54. DEXAMETHASONE [Concomitant]
     Active Substance: DEXAMETHASONE
     Indication: Breast cancer metastatic
     Dosage: 6 MILLIGRAM , EVERY 3 WEEK, DOSE FORM: 120)
     Route: 042
     Dates: start: 20191113
  55. DEXAMETHASONE [Concomitant]
     Active Substance: DEXAMETHASONE
     Dosage: 120
  56. DEXAMETHASONE [Concomitant]
     Active Substance: DEXAMETHASONE
     Dosage: 6 MILLIGRAM,TIW
     Route: 042
     Dates: start: 20191113
  57. DEXAMETHASONE [Concomitant]
     Active Substance: DEXAMETHASONE
     Dosage: 20 MILLIGRAM,TIW
     Route: 042
     Dates: start: 20160324
  58. CITALOPRAM [Concomitant]
     Active Substance: CITALOPRAM HYDROBROMIDE
     Indication: Thrombosis prophylaxis
     Dosage: (20 MG, 1X/DAY) (PHARMACEUTICAL DOSE FORM :245)
     Route: 048
     Dates: start: 201003
  59. CITALOPRAM [Concomitant]
     Active Substance: CITALOPRAM HYDROBROMIDE
     Dosage: 20 MG, 1X/DAY
     Route: 048
     Dates: start: 201003
  60. CITALOPRAM [Concomitant]
     Active Substance: CITALOPRAM HYDROBROMIDE
     Dosage: UNK
     Dates: start: 201003
  61. CITALOPRAM [Concomitant]
     Active Substance: CITALOPRAM HYDROBROMIDE
     Dosage: 20 MG, QD
     Route: 048
     Dates: start: 201003
  62. OMEPRAZOLE [Concomitant]
     Active Substance: OMEPRAZOLE
     Indication: Dyspepsia
     Dosage: 20 MG, 1X/DAY (PHARMACEUTICAL DOSE FORM: 245), QD
     Route: 048
     Dates: start: 20170727
  63. OMEPRAZOLE [Concomitant]
     Active Substance: OMEPRAZOLE
     Indication: Dyspepsia
     Dosage: DOSE FORM: 245
  64. OMEPRAZOLE [Concomitant]
     Active Substance: OMEPRAZOLE
     Dosage: 20 MG, 1X/DAY (PHARMACEUTICAL DOSE FORM: 245)
     Route: 065
     Dates: start: 20170727
  65. OMEPRAZOLE [Concomitant]
     Active Substance: OMEPRAZOLE
     Dosage: 20 MG, 1X/DAY
     Route: 048
     Dates: start: 20170727
  66. OMEPRAZOLE [Concomitant]
     Active Substance: OMEPRAZOLE
     Dosage: UNK
  67. OMEPRAZOLE [Concomitant]
     Active Substance: OMEPRAZOLE
     Dosage: 20 MG, 1X/DAY
     Dates: start: 20170727
  68. OMEPRAZOLE [Concomitant]
     Active Substance: OMEPRAZOLE
     Dosage: 20 MG, 1X/DAY
     Dates: start: 20170727
  69. OMEPRAZOLE [Concomitant]
     Active Substance: OMEPRAZOLE
     Dosage: 20 MG, 1X/DAY
     Dates: start: 20170727

REACTIONS (9)
  - Atrial thrombosis [Recovered/Resolved]
  - Joint stiffness [Recovered/Resolved]
  - Atrophic vulvovaginitis [Recovered/Resolved]
  - Musculoskeletal stiffness [Recovered/Resolved]
  - Fatigue [Recovered/Resolved]
  - Infection [Recovered/Resolved]
  - Influenza like illness [Recovered/Resolved]
  - Diarrhoea [Not Recovered/Not Resolved]
  - Off label use [Unknown]

NARRATIVE: CASE EVENT DATE: 20160324
